FAERS Safety Report 5968682-0 (Version None)
Quarter: 2008Q4

REPORT INFORMATION
  Report Type: 
  Country: None (occurrence: None)
  Receive Date: 20081126
  Receipt Date: 20081120
  Transmission Date: 20090506
  Serious: Yes (Death)
  Sender: FDA-Public Use
  Company Number: NG-SANOFI-SYNTHELABO-A01200814758

PATIENT
  Age: 3 Day
  Sex: Male
  Weight: 2.6 kg

DRUGS (1)
  1. PENTAZOCINE LACTATE [Suspect]
     Indication: COLOSTOMY
     Route: 042

REACTIONS (1)
  - RESPIRATORY DEPRESSION [None]
